FAERS Safety Report 6644467-7 (Version None)
Quarter: 2010Q1

REPORT INFORMATION
  Report Type: 
  Country: None (occurrence: None)
  Receive Date: 20100319
  Receipt Date: 20100319
  Transmission Date: 20100710
  Serious: Yes (Hospitalization)
  Sender: FDA-Public Use
  Company Number: None

PATIENT
  Age: 50 Year
  Sex: Female
  Weight: 106 kg

DRUGS (12)
  1. VALPROIC ACID [Suspect]
     Indication: BIPOLAR DISORDER
     Dosage: 500 MG QAM PO, CHRONIC
     Route: 048
  2. VALPROIC ACID [Suspect]
     Indication: BIPOLAR DISORDER
     Dosage: 1000MG QHS PO, CHRONIC
     Route: 048
  3. ADVAIR DISKUS 100/50 [Concomitant]
  4. ALBUTEROL [Concomitant]
  5. PHENERGAN HCL [Concomitant]
  6. OMEPRAZOLE [Concomitant]
  7. LASIX [Concomitant]
  8. TRAMADOL HCL [Concomitant]
  9. FLUOXETINE [Concomitant]
  10. BUPION [Concomitant]
  11. SPIRIVA [Concomitant]
  12. THORAZINE [Concomitant]

REACTIONS (7)
  - AMMONIA INCREASED [None]
  - DELIRIUM [None]
  - FALL [None]
  - MENTAL STATUS CHANGES [None]
  - SOMNOLENCE [None]
  - SYNCOPE [None]
  - THERAPEUTIC AGENT TOXICITY [None]
